FAERS Safety Report 18914511 (Version 2)
Quarter: 2021Q1

REPORT INFORMATION
  Report Type: Spontaneous
  Country: US (occurrence: US)
  Receive Date: 20210219
  Receipt Date: 20210312
  Transmission Date: 20210420
  Serious: No
  Sender: FDA-Public Use
  Company Number: US-GLAXOSMITHKLINE-US2021AMR037611

PATIENT
  Sex: Female

DRUGS (1)
  1. ZEJULA [Suspect]
     Active Substance: NIRAPARIB
     Indication: OVARIAN CANCER
     Dosage: 200 MG, QD
     Dates: start: 20210124, end: 20210201

REACTIONS (4)
  - Tachycardia [Not Recovered/Not Resolved]
  - Renal pain [Not Recovered/Not Resolved]
  - Illness [Unknown]
  - Perihepatic discomfort [Not Recovered/Not Resolved]
